FAERS Safety Report 16174155 (Version 19)
Quarter: 2022Q4

REPORT INFORMATION
  Report Type: Report from Study
  Country: US (occurrence: US)
  Receive Date: 20190409
  Receipt Date: 20221115
  Transmission Date: 20230113
  Serious: Yes (Disabling, Other)
  Sender: FDA-Public Use
  Company Number: US-PFIZER INC-2019144118

PATIENT
  Age: 60 Year
  Sex: Female
  Weight: 44 kg

DRUGS (10)
  1. LYRICA [Suspect]
     Active Substance: PREGABALIN
     Indication: Fibromyalgia
     Dosage: 50 MILLIGRAM
     Route: 048
     Dates: start: 2015
  2. LYRICA [Suspect]
     Active Substance: PREGABALIN
     Dosage: 75 MILLIGRAM, TID
     Route: 048
  3. LYRICA [Suspect]
     Active Substance: PREGABALIN
     Dosage: 75 MILLIGRAM
     Route: 048
  4. LYRICA [Suspect]
     Active Substance: PREGABALIN
     Dosage: UNK UNK, BID
     Route: 048
  5. LYRICA [Suspect]
     Active Substance: PREGABALIN
     Dosage: UNK UNK, TID
     Route: 065
  6. LYRICA [Suspect]
     Active Substance: PREGABALIN
     Dosage: 75 MILLIGRAM, BID
     Route: 048
  7. PROLIA [Suspect]
     Active Substance: DENOSUMAB
     Indication: Product used for unknown indication
     Dosage: UNK
     Route: 065
  8. CLONAZEPAM [Concomitant]
     Active Substance: CLONAZEPAM
     Indication: Anxiety
     Dosage: 2 MILLIGRAM, QID, (REGIMEN DOSE UNIT: MILLIGRAM)
     Route: 048
  9. CLONAZEPAM [Concomitant]
     Active Substance: CLONAZEPAM
     Indication: Post-traumatic stress disorder
  10. CLONAZEPAM [Concomitant]
     Active Substance: CLONAZEPAM
     Indication: Obsessive-compulsive disorder

REACTIONS (13)
  - Fractured coccyx [Unknown]
  - Thoracic vertebral fracture [Unknown]
  - Fall [Recovered/Resolved]
  - Fibromyalgia [Unknown]
  - Weight fluctuation [Unknown]
  - Osteoporosis [Not Recovered/Not Resolved]
  - Gait disturbance [Not Recovered/Not Resolved]
  - Stress [Unknown]
  - Withdrawal syndrome [Unknown]
  - Peripheral swelling [Unknown]
  - Illness [Unknown]
  - COVID-19 [Unknown]
  - Product prescribing issue [Unknown]

NARRATIVE: CASE EVENT DATE: 20190217
